FAERS Safety Report 24158100 (Version 1)
Quarter: 2024Q3

REPORT INFORMATION
  Report Type: Spontaneous
  Country: FR (occurrence: FR)
  Receive Date: 20240731
  Receipt Date: 20240731
  Transmission Date: 20241017
  Serious: Yes (Hospitalization)
  Sender: TEVA
  Company Number: None

PATIENT
  Age: 69 Year
  Sex: Female
  Weight: 100 kg

DRUGS (2)
  1. EPIRUBICIN [Suspect]
     Active Substance: EPIRUBICIN
     Indication: Neoplasm malignant
     Route: 042
     Dates: start: 20240322, end: 20240322
  2. CYCLOPHOSPHAMIDE [Suspect]
     Active Substance: CYCLOPHOSPHAMIDE
     Indication: Neoplasm malignant
     Route: 042
     Dates: start: 20240322, end: 20240322

REACTIONS (4)
  - Febrile bone marrow aplasia [Recovered/Resolved]
  - Sepsis [Recovered/Resolved]
  - Myocardial infarction [Recovered/Resolved]
  - Starvation [Recovered/Resolved]

NARRATIVE: CASE EVENT DATE: 20240329
